FAERS Safety Report 4774702-1 (Version None)
Quarter: 2005Q3

REPORT INFORMATION
  Report Type: 
  Country: None (occurrence: None)
  Receive Date: 20050919
  Receipt Date: 20050902
  Transmission Date: 20060218
  Serious: Yes (Death)
  Sender: FDA-Public Use
  Company Number: LNL-100411-NL

PATIENT
  Age: 63 Year
  Sex: Male

DRUGS (3)
  1. ROCURONIUM BROMIDE [Suspect]
     Indication: MUSCLE RELAXANT THERAPY
     Dosage: 35 MG INTRAVENOUS (NOS)
     Route: 042
     Dates: start: 19991130, end: 19991130
  2. MORPHINE SULFATE [Suspect]
     Dosage: 10 MG INTRAVENOUS (NOS)
     Route: 042
  3. THIOPENTONE SODIUM [Suspect]
     Dosage: 25 MG INTRAVENOUS (NOS)
     Route: 042

REACTIONS (4)
  - ANAPHYLACTIC REACTION [None]
  - COUGH [None]
  - SHOCK [None]
  - VENTRICULAR FIBRILLATION [None]
